FAERS Safety Report 7768935-X (Version None)
Quarter: 2011Q3

REPORT INFORMATION
  Report Type: 
  Country: None (occurrence: None)
  Receive Date: 20110922
  Receipt Date: 20110311
  Transmission Date: 20111222
  Serious: No
  Sender: FDA-Public Use
  Company Number: US-ASTRAZENECA-2010SE53790

PATIENT
  Sex: Female
  Weight: 63.5 kg

DRUGS (6)
  1. RESTORIL [Concomitant]
  2. LITHIUM CARBONATE [Concomitant]
     Indication: BIPOLAR DISORDER
  3. CLONOPIN [Concomitant]
  4. SEROQUEL [Suspect]
     Indication: SLEEP DISORDER
     Route: 048
  5. STOL SOFTNER [Concomitant]
  6. WELLBUTRIN [Concomitant]
     Indication: DEPRESSION

REACTIONS (4)
  - FATIGUE [None]
  - DRUG DOSE OMISSION [None]
  - INSOMNIA [None]
  - CRYING [None]
